FAERS Safety Report 9675518 (Version 2)
Quarter: 2014Q2

REPORT INFORMATION
  Report Type: Spontaneous
  Country: IT (occurrence: IT)
  Receive Date: 20131107
  Receipt Date: 20140403
  Transmission Date: 20141212
  Serious: Yes (Other)
  Sender: FDA-Public Use
  Company Number: IT-B.I. PHARMACEUTICALS,INC./RIDGEFIELD-2013-BI-35325IT

PATIENT
  Age: 66 Year
  Sex: Female

DRUGS (2)
  1. MOBIC [Suspect]
     Indication: INTERVERTEBRAL DISC DISORDER
     Route: 048
     Dates: start: 20131016, end: 20131018
  2. CONGESCOR [Concomitant]
     Route: 048

REACTIONS (6)
  - Breast oedema [Not Recovered/Not Resolved]
  - Face oedema [Not Recovered/Not Resolved]
  - Generalised oedema [Not Recovered/Not Resolved]
  - Oedema genital [Not Recovered/Not Resolved]
  - Oedema peripheral [Not Recovered/Not Resolved]
  - Oedema peripheral [Not Recovered/Not Resolved]
